FAERS Safety Report 18586009 (Version 1)
Quarter: 2020Q4

REPORT INFORMATION
  Report Type: Spontaneous
  Country: CZ (occurrence: CZ)
  Receive Date: 20201207
  Receipt Date: 20201207
  Transmission Date: 20210114
  Serious: Yes (Other)
  Sender: FDA-Public Use
  Company Number: CZ-B.I. PHARMACEUTICALS,INC./RIDGEFIELD-2020-BI-061337

PATIENT
  Age: 36 Year
  Sex: Male

DRUGS (14)
  1. NEUROL [ALPRAZOLAM] [Concomitant]
     Active Substance: ALPRAZOLAM
     Indication: PRODUCT USED FOR UNKNOWN INDICATION
     Dosage: UNK
  2. EUPHYLLIN [THEOPHYLLINE] [Suspect]
     Active Substance: THEOPHYLLINE
     Indication: ASTHMA
     Dosage: 300 MG, BID
     Route: 065
  3. CASTISPIR [Suspect]
     Active Substance: MONTELUKAST SODIUM
     Indication: ASTHMA
     Dosage: UNK
     Route: 065
  4. AIRFLUSAN FORSPIRO [Suspect]
     Active Substance: FLUTICASONE PROPIONATE\SALMETEROL XINAFOATE
     Indication: ASTHMA
     Dosage: 2 PUFF(S), BID, 50/500 UG IN THE MORNING AND EVENING
     Route: 055
  5. APAURIN [Concomitant]
     Active Substance: DIAZEPAM
     Indication: PRODUCT USED FOR UNKNOWN INDICATION
     Dosage: UNK FREQUENCY:
  6. JOVESTO [Concomitant]
     Active Substance: DESLORATADINE
     Indication: ANTIALLERGIC THERAPY
     Dosage: UNK
  7. MEDROL [Suspect]
     Active Substance: METHYLPREDNISOLONE
     Indication: ASTHMA
     Dosage: UNK, 4-32 MG DAILY
     Route: 065
  8. NEUROTOP [Concomitant]
     Active Substance: CARBAMAZEPINE
     Indication: PRODUCT USED FOR UNKNOWN INDICATION
     Dosage: UNK
  9. SPIRIVA RESPIMAT [Suspect]
     Active Substance: TIOTROPIUM BROMIDE
     Indication: ASTHMA
     Dosage: 2 PUFF(S), BID
     Route: 055
  10. RELVAR ELLIPTA [FLUTICASONE FUROATE;VILANTEROL TRIFENATATE] [Suspect]
     Active Substance: FLUTICASONE FUROATE\VILANTEROL TRIFENATATE
     Indication: ASTHMA
     Dosage: 1 PUFF(S), QD, 184/22 UG IN THE MORNING
     Route: 055
  11. BERODUAL [Suspect]
     Active Substance: FENOTEROL HYDROBROMIDE\IPRATROPIUM BROMIDE
     Indication: NOCTURNAL DYSPNOEA
     Dosage: UNK, PRN, MDI AS NEEDED, 1-2 INHALATIONS THRICE DAILY FREQUENCY:
     Route: 055
  12. COMBAIR [BECLOMETASONE DIPROPIONATE;FORMOTEROL FUMARATE] [Suspect]
     Active Substance: BECLOMETHASONE DIPROPIONATE\FORMOTEROL FUMARATE
     Indication: ASTHMA
     Dosage: UNK, 200/6 UG 2 X 2 INHALATIONS
     Route: 055
  13. AMITRIPTYLINE [Concomitant]
     Active Substance: AMITRIPTYLINE
     Indication: PRODUCT USED FOR UNKNOWN INDICATION
     Dosage: UNK
  14. LYRICA [Concomitant]
     Active Substance: PREGABALIN
     Indication: PRODUCT USED FOR UNKNOWN INDICATION
     Dosage: UNK

REACTIONS (14)
  - Drug dependence [Unknown]
  - Vocal cord dysfunction [Unknown]
  - Concomitant disease aggravated [Unknown]
  - Gastrooesophageal reflux disease [Unknown]
  - Drug abuse [Unknown]
  - Headache [Unknown]
  - Laryngitis [Unknown]
  - Eosinophilia [Unknown]
  - Dyspnoea exertional [Unknown]
  - Rhinitis allergic [Unknown]
  - Drug ineffective [Unknown]
  - Hypertension [Unknown]
  - Fungal infection [Unknown]
  - Nocturnal dyspnoea [Unknown]
